FAERS Safety Report 15135743 (Version 1)
Quarter: 2018Q3

REPORT INFORMATION
  Report Type: Report from Study
  Country: US (occurrence: US)
  Receive Date: 20180712
  Receipt Date: 20180712
  Transmission Date: 20181010
  Serious: Yes (Death, Other)
  Sender: FDA-Public Use
  Company Number: US-SA-2015SA172106

PATIENT
  Age: 74 Year
  Sex: Female

DRUGS (10)
  1. CLOPIDOGREL [Concomitant]
     Active Substance: CLOPIDOGREL BISULFATE
     Dosage: 75 MG,UNK
     Dates: end: 201509
  2. HUMALOG [Suspect]
     Active Substance: INSULIN LISPRO
     Dosage: UNK UNK,UNK
     Route: 065
  3. CARVEDILOL. [Concomitant]
     Active Substance: CARVEDILOL
     Dosage: UNK
  4. LISINOPRIL. [Concomitant]
     Active Substance: LISINOPRIL
     Dosage: 20 MG,UNK
  5. INSULIN GLARGINE [Suspect]
     Active Substance: INSULIN GLARGINE
     Indication: DIABETES MELLITUS
     Dosage: 40 DF,UNK
     Route: 058
     Dates: start: 2012, end: 20180523
  6. PRAVASTATIN. [Concomitant]
     Active Substance: PRAVASTATIN
     Dosage: UNK
  7. FUROSEMIDE. [Concomitant]
     Active Substance: FUROSEMIDE
     Dosage: 40 MG,UNK
  8. APIDRA [Suspect]
     Active Substance: INSULIN GLULISINE
     Dosage: 50 U, QD
  9. ACETYLSALICYLIC ACID [Concomitant]
     Active Substance: ASPIRIN
     Dosage: 325 MG,UNK
     Dates: start: 2010
  10. IRON [Concomitant]
     Active Substance: IRON
     Dosage: UNK
     Dates: start: 2011

REACTIONS (2)
  - Hypoacusis [Unknown]
  - Cardiac failure [Fatal]

NARRATIVE: CASE EVENT DATE: 20180523
